FAERS Safety Report 5405137-6 (Version None)
Quarter: 2007Q3

REPORT INFORMATION
  Report Type: 
  Country: None (occurrence: None)
  Receive Date: 20070803
  Receipt Date: 20070726
  Transmission Date: 20080115
  Serious: Yes (Hospitalization)
  Sender: FDA-Public Use
  Company Number: ES-MERCK-0707USA04500

PATIENT
  Age: 37 Year
  Sex: Female

DRUGS (1)
  1. HYDROCORTONE [Suspect]
     Indication: SECONDARY ADRENOCORTICAL INSUFFICIENCY
     Route: 048

REACTIONS (6)
  - CROHN'S DISEASE [None]
  - DIARRHOEA [None]
  - FISTULA [None]
  - HAEMORRHAGE [None]
  - INFECTION [None]
  - PAIN [None]
